FAERS Safety Report 11001000 (Version 1)
Quarter: 2015Q2

REPORT INFORMATION
  Report Type: Spontaneous
  Country: US (occurrence: US)
  Receive Date: 20150408
  Receipt Date: 20150408
  Transmission Date: 20150821
  Serious: No
  Sender: FDA-Public Use
  Company Number: US-SA-2014SA150868

PATIENT
  Age: 75 Year
  Sex: Female

DRUGS (1)
  1. ALLEGRA [Suspect]
     Active Substance: FEXOFENADINE HYDROCHLORIDE
     Indication: HYPERSENSITIVITY
     Dosage: 3 DAYS/WEEK FROM ONE MONTH AGO
     Route: 048
     Dates: start: 201409

REACTIONS (5)
  - Ocular discomfort [Unknown]
  - Productive cough [Unknown]
  - Pruritus [Unknown]
  - Vision blurred [Unknown]
  - Drug ineffective [Unknown]
